FAERS Safety Report 6130599-9 (Version None)
Quarter: 2009Q1

REPORT INFORMATION
  Report Type: 
  Country: None (occurrence: None)
  Receive Date: 20090323
  Receipt Date: 20090308
  Transmission Date: 20090719
  Serious: Yes (Other)
  Sender: FDA-Public Use
  Company Number: 2007S1006953

PATIENT
  Age: 65 Year
  Sex: Male
  Weight: 88.905 kg

DRUGS (11)
  1. PHOSPHOSODA FLAVOR NOT SPECIFIED [Suspect]
     Indication: COLONOSCOPY
     Dosage: 90 ML; TOTAL; PO
     Route: 048
     Dates: start: 20050111, end: 20050111
  2. ATIVAN [Concomitant]
  3. CLONIDINE HCL [Concomitant]
  4. PHENERGAN [Concomitant]
  5. CARAFATE [Concomitant]
  6. ALPRAZOLAM [Concomitant]
  7. PROZAC [Concomitant]
  8. NORVASC [Concomitant]
  9. NEXIUM [Concomitant]
  10. CENTRUM SILVER [Concomitant]
  11. XANAX [Concomitant]

REACTIONS (2)
  - NEPHROCALCINOSIS [None]
  - RENAL FAILURE ACUTE [None]
